FAERS Safety Report 6215994-1 (Version None)
Quarter: 2009Q2

REPORT INFORMATION
  Report Type: 
  Country: None (occurrence: None)
  Receive Date: 20090605
  Receipt Date: 20090602
  Transmission Date: 20091009
  Serious: Yes (Hospitalization)
  Sender: FDA-Public Use
  Company Number: US-BRISTOL-MYERS SQUIBB COMPANY-14642573

PATIENT
  Age: 67 Year
  Sex: Male
  Weight: 76 kg

DRUGS (3)
  1. ERBITUX [Suspect]
     Indication: NON-SMALL CELL LUNG CANCER
     Dosage: AGENT START DATE:13APR09 FIRST COURSE STARTED:02FEB09
     Dates: start: 20090518, end: 20090518
  2. CARBOPLATIN [Suspect]
     Indication: NON-SMALL CELL LUNG CANCER
     Dosage: AGENT START DATE:09FEB09 FIRST COURSE STARTED:02FEB09
     Dates: start: 20090511, end: 20090511
  3. TAXOL [Suspect]
     Indication: NON-SMALL CELL LUNG CANCER
     Dosage: AGENT START DATE:09FEB09 FIRST COURSE STARTED:02FEB09
     Dates: start: 20090511, end: 20090511

REACTIONS (1)
  - ATRIAL FIBRILLATION [None]
